FAERS Safety Report 5134387-1 (Version None)
Quarter: 2006Q4

REPORT INFORMATION
  Report Type: 
  Country: None (occurrence: None)
  Receive Date: 20061025
  Receipt Date: 20060517
  Transmission Date: 20070319
  Serious: Yes (Other)
  Sender: FDA-Public Use
  Company Number: PHBS2006JP07561

PATIENT
  Age: 68 Year
  Sex: Male

DRUGS (3)
  1. DIOVAN [Suspect]
     Indication: HYPERTENSION
     Dosage: 80 MG, QD
     Route: 048
     Dates: start: 20060127, end: 20060530
  2. AMLODIN [Suspect]
     Route: 048
  3. PEGASYS [Suspect]
     Route: 042

REACTIONS (3)
  - ERYTHEMA MULTIFORME [None]
  - PRURITUS GENERALISED [None]
  - RASH [None]
